FAERS Safety Report 6736479-X (Version None)
Quarter: 2010Q2

REPORT INFORMATION
  Report Type: 
  Country: None (occurrence: None)
  Receive Date: 20100521
  Receipt Date: 20100518
  Transmission Date: 20101027
  Serious: Yes (Other)
  Sender: FDA-Public Use
  Company Number: US-ELI_LILLY_AND_COMPANY-US201004007493

PATIENT
  Age: 74 Year
  Sex: Female

DRUGS (2)
  1. HUMALOG [Suspect]
     Indication: DIABETES MELLITUS
     Dosage: 20 U, EACH MORNING
     Dates: start: 20100301
  2. HUMALOG [Suspect]
     Dosage: 18 U, EACH EVENING
     Dates: start: 20100301

REACTIONS (8)
  - BLOOD GLUCOSE INCREASED [None]
  - FATIGUE [None]
  - HEPATIC STEATOSIS [None]
  - INCORRECT DOSE ADMINISTERED [None]
  - INJECTION SITE HAEMORRHAGE [None]
  - INJECTION SITE INJURY [None]
  - INJECTION SITE PAIN [None]
  - MUSCULOSKELETAL PAIN [None]
